FAERS Safety Report 9301019 (Version 2)
Quarter: 2013Q2

REPORT INFORMATION
  Report Type: Spontaneous
  Country: ES (occurrence: ES)
  Receive Date: 20130521
  Receipt Date: 20130527
  Transmission Date: 20140414
  Serious: Yes (Hospitalization)
  Sender: FDA-Public Use
  Company Number: ES-ROCHE-1223711

PATIENT
  Age: 53 Year
  Sex: Male

DRUGS (3)
  1. PEGASYS [Suspect]
     Indication: HEPATITIS C
     Route: 058
     Dates: start: 20121019
  2. VICTRELIS [Suspect]
     Indication: HEPATITIS C
     Route: 065
     Dates: start: 20121122
  3. COPEGUS [Suspect]
     Indication: HEPATITIS C
     Route: 048
     Dates: start: 20121019, end: 20130416

REACTIONS (23)
  - Cholecystitis acute [Recovered/Resolved]
  - Cholelithiasis [Recovered/Resolved]
  - Vomiting [Unknown]
  - Haemoglobin decreased [Unknown]
  - Hepatitis C RNA increased [Unknown]
  - Neutrophil count decreased [Not Recovered/Not Resolved]
  - White blood cell count decreased [Not Recovered/Not Resolved]
  - Fatigue [Unknown]
  - Pruritus [Unknown]
  - Rash [Not Recovered/Not Resolved]
  - Irritability [Unknown]
  - Depressed mood [Unknown]
  - Dysgeusia [Unknown]
  - Pruritus [Unknown]
  - Folliculitis [Unknown]
  - Pyrexia [Unknown]
  - Liver disorder [Unknown]
  - Neutropenia [Not Recovered/Not Resolved]
  - Constipation [Unknown]
  - Renal colic [Recovered/Resolved]
  - Anaemia [Unknown]
  - Pyrexia [Unknown]
  - Abdominal pain upper [Unknown]
